FAERS Safety Report 11220216 (Version 1)
Quarter: 2015Q2

REPORT INFORMATION
  Report Type: Report from Study
  Country: US (occurrence: US)
  Receive Date: 20150625
  Receipt Date: 20150625
  Transmission Date: 20150821
  Serious: No
  Sender: FDA-Public Use
  Company Number: US-EXELIXIS-CABO-15005251

PATIENT
  Sex: Male

DRUGS (1)
  1. CABOZANTINIB [Suspect]
     Active Substance: CABOZANTINIB
     Indication: THYROID CANCER
     Dosage: 60 MG, QD
     Route: 048
     Dates: start: 20150207

REACTIONS (7)
  - Proctalgia [Unknown]
  - Sluggishness [Unknown]
  - Off label use [Unknown]
  - Oral pain [Unknown]
  - Ageusia [Unknown]
  - Rectal haemorrhage [Unknown]
  - Constipation [Recovered/Resolved]
